FAERS Safety Report 24928251 (Version 1)
Quarter: 2025Q1

REPORT INFORMATION
  Report Type: Spontaneous
  Country: FI (occurrence: FI)
  Receive Date: 20250205
  Receipt Date: 20250205
  Transmission Date: 20250409
  Serious: Yes (Disabling)
  Sender: BAUSCH AND LOMB
  Company Number: FI-BAUSCH-BL-2025-001509

PATIENT
  Age: 31 Year
  Sex: Female

DRUGS (1)
  1. HYDROCORTISONE [Suspect]
     Active Substance: HYDROCORTISONE
     Indication: Dermatitis atopic
     Route: 003
     Dates: start: 2010, end: 202208

REACTIONS (8)
  - Temperature regulation disorder [Recovering/Resolving]
  - Alopecia [Recovering/Resolving]
  - Skin hypertrophy [Recovering/Resolving]
  - Skin exfoliation [Recovering/Resolving]
  - Discharge [Recovering/Resolving]
  - Pruritus [Recovering/Resolving]
  - Rash [Recovering/Resolving]
  - Insomnia [Recovering/Resolving]

NARRATIVE: CASE EVENT DATE: 20220101
